FAERS Safety Report 4757199-7 (Version None)
Quarter: 2005Q3

REPORT INFORMATION
  Report Type: 
  Country: None (occurrence: None)
  Receive Date: 20050829
  Receipt Date: 20050829
  Transmission Date: 20060218
  Serious: Yes (Death)
  Sender: FDA-Public Use
  Company Number: None

PATIENT
  Sex: Female
  Weight: 9.1 kg

DRUGS (2)
  1. CYTARABINE [Suspect]
     Indication: ACUTE MYELOID LEUKAEMIA
     Dosage: SEE IMAGE
     Dates: start: 20050715
  2. ETOPOSIDE [Suspect]
     Dosage: SEE IMAGE
     Dates: start: 20050715

REACTIONS (21)
  - ABDOMINAL DISTENSION [None]
  - ACTIVATED PARTIAL THROMBOPLASTIN TIME PROLONGED [None]
  - ADENOVIRUS INFECTION [None]
  - ASCITES [None]
  - ATELECTASIS [None]
  - COAGULOPATHY [None]
  - DIARRHOEA [None]
  - DYSPNOEA [None]
  - GASTROINTESTINAL OEDEMA [None]
  - GRUNTING [None]
  - HAEMATOCHEZIA [None]
  - ILEUS [None]
  - INTUSSUSCEPTION [None]
  - NASAL FLARING [None]
  - PROTHROMBIN TIME PROLONGED [None]
  - PYREXIA [None]
  - RESPIRATORY DISTRESS [None]
  - RIGHT VENTRICULAR FAILURE [None]
  - THROMBOCYTOPENIA [None]
  - TRANSAMINASES INCREASED [None]
  - VOMITING [None]
